FAERS Safety Report 6086153-0 (Version None)
Quarter: 2009Q1

REPORT INFORMATION
  Report Type: 
  Country: None (occurrence: None)
  Receive Date: 20090217
  Receipt Date: 20090217
  Transmission Date: 20090719
  Serious: No
  Sender: FDA-Public Use
  Company Number: None

PATIENT
  Age: 57 Year
  Sex: Female
  Weight: 70.7611 kg

DRUGS (2)
  1. NEXIUM [Suspect]
     Indication: GASTROOESOPHAGEAL REFLUX DISEASE
     Dosage: 40 MG 1 CAP DAILY PO
     Route: 048
     Dates: start: 20060428, end: 20060510
  2. PRILOSEC [Suspect]
     Indication: GASTROOESOPHAGEAL REFLUX DISEASE
     Dosage: 20 MG TO 40 MG 1 CAP DAILY OR PRN PO
     Route: 048
     Dates: start: 20060522, end: 20090214

REACTIONS (7)
  - ARTHRALGIA [None]
  - ASTHENIA [None]
  - ASTHMA [None]
  - MOBILITY DECREASED [None]
  - PAIN [None]
  - WALKING AID USER [None]
  - WHEELCHAIR USER [None]
